FAERS Safety Report 9036455 (Version 1)
Quarter: 2013Q1

REPORT INFORMATION
  Report Type: Spontaneous
  Country: US (occurrence: None)
  Receive Date: 20130122
  Receipt Date: 20130122
  Transmission Date: 20140127
  Serious: Yes (Other)
  Sender: FDA-Public Use
  Company Number: None

PATIENT
  Age: 25 Year
  Sex: Female
  Weight: 65.77 kg

DRUGS (1)
  1. CHANTIX [Suspect]
     Indication: SMOKING CESSATION THERAPY
     Dosage: 1 MILLIGRAM VARENICLINE, 2 TIMES A DAY, ORAL
     Route: 048
     Dates: start: 20121217, end: 20121228

REACTIONS (6)
  - Abnormal dreams [None]
  - Dizziness [None]
  - Gait disturbance [None]
  - Mobility decreased [None]
  - Dissociation [None]
  - Fear [None]
